FAERS Safety Report 4850294-3 (Version None)
Quarter: 2005Q4

REPORT INFORMATION
  Report Type: 
  Country: None (occurrence: None)
  Receive Date: 20051123
  Receipt Date: 20051017
  Transmission Date: 20060501
  Serious: No
  Sender: FDA-Public Use
  Company Number: TPA2005A01276

PATIENT
  Age: 59 Year
  Sex: Male
  Weight: 76.6579 kg

DRUGS (3)
  1. ROZEREM [Suspect]
     Indication: INSOMNIA
     Dosage: 8 MG, QHS, PER ORAL
     Route: 048
     Dates: start: 20051015
  2. PAXIL [Concomitant]
  3. ASPIRIN [Concomitant]

REACTIONS (2)
  - MIDDLE INSOMNIA [None]
  - THERAPEUTIC RESPONSE DECREASED [None]
